FAERS Safety Report 5867453-3 (Version None)
Quarter: 2008Q3

REPORT INFORMATION
  Report Type: 
  Country: None (occurrence: None)
  Receive Date: 20080902
  Receipt Date: 20080902
  Transmission Date: 20090109
  Serious: Yes (Hospitalization)
  Sender: FDA-Public Use
  Company Number: PHEH1996US09642

PATIENT
  Sex: Male
  Weight: 93.5 kg

DRUGS (14)
  1. NEORAL [Suspect]
     Route: 042
     Dates: start: 19950906, end: 19950907
  2. NEORAL [Suspect]
     Route: 048
     Dates: start: 19950906, end: 19950908
  3. NEORAL [Suspect]
     Route: 065
     Dates: start: 19950908
  4. SANDIMMUNE [Suspect]
  5. MORPHINE [Concomitant]
     Dosage: UNSPECIFIED
     Route: 065
  6. METHYLPREDNISOLONE [Concomitant]
     Dosage: UNSPECIFIED
     Route: 065
  7. IMURAN [Concomitant]
     Dosage: UNSPECIFIED
     Route: 065
  8. VANCOMYCIN HYDROCHLORIDE [Concomitant]
     Dosage: UNSPECIFIED
     Route: 065
  9. CEFOTAXIME [Concomitant]
     Dosage: UNSPECIFIED
     Route: 065
  10. RANITIDINE [Concomitant]
     Dosage: UNSPECIFIED
     Route: 065
  11. DOPAMINE HCL [Concomitant]
     Dosage: UNSPECIFIED
     Route: 065
  12. NYSTATIN [Concomitant]
     Dosage: UNSPECIFIED
     Route: 065
  13. DIGOXIN [Concomitant]
     Dosage: UNSPECIFIED
     Route: 065
  14. VITAMIN K TAB [Concomitant]
     Dosage: UNSPECIFIED
     Route: 065

REACTIONS (8)
  - ANAEMIA MEGALOBLASTIC [None]
  - BLOOD CREATININE INCREASED [None]
  - COAGULATION DISORDER NEONATAL [None]
  - INFECTION [None]
  - MELAENA [None]
  - SEPSIS [None]
  - TRANSPLANT REJECTION [None]
  - URINE OUTPUT DECREASED [None]
